FAERS Safety Report 16785094 (Version 3)
Quarter: 2019Q3

REPORT INFORMATION
  Report Type: Report from Study
  Country: US (occurrence: US)
  Receive Date: 20190909
  Receipt Date: 20190920
  Transmission Date: 20191005
  Serious: Yes (Hospitalization, Other)
  Sender: FDA-Public Use
  Company Number: US-GILEAD-2019-0426952

PATIENT
  Age: 6 Year
  Sex: Male

DRUGS (20)
  1. CREON [Concomitant]
     Active Substance: PANCRELIPASE AMYLASE\PANCRELIPASE LIPASE\PANCRELIPASE PROTEASE
  2. ORKAMBI [Concomitant]
     Active Substance: IVACAFTOR\LUMACAFTOR
  3. PULMOZYME [Concomitant]
     Active Substance: DORNASE ALFA
  4. MIRALAX [Concomitant]
     Active Substance: POLYETHYLENE GLYCOL 3350
  5. AZTREONAM LYSINE [Suspect]
     Active Substance: AZTREONAM LYSINE
     Indication: CYSTIC FIBROSIS
     Dosage: 75 MG, TID; 28 DAYS ON, 28 DAYS OFF
     Route: 055
     Dates: start: 20180405
  6. AQUADEKS PEDIATRIC LIQUID [Concomitant]
     Active Substance: MINERALS\VITAMINS
  7. DOCUSATE [Concomitant]
     Active Substance: DOCUSATE
  8. BACITRACIN. [Concomitant]
     Active Substance: BACITRACIN
  9. HYPERSAL [Concomitant]
     Active Substance: SODIUM CHLORIDE
  10. IPRATROPIUM [Concomitant]
     Active Substance: IPRATROPIUM
  11. BOOST [Concomitant]
     Active Substance: DIETARY SUPPLEMENT
  12. TOBRAMYCIN. [Concomitant]
     Active Substance: TOBRAMYCIN
  13. VITAMIN D3 [Concomitant]
     Active Substance: CHOLECALCIFEROL
  14. ERYTHROMYCIN. [Concomitant]
     Active Substance: ERYTHROMYCIN
  15. QVAR [Concomitant]
     Active Substance: BECLOMETHASONE DIPROPIONATE
  16. OMEPRAZOLE. [Concomitant]
     Active Substance: OMEPRAZOLE
  17. NYSTATIN. [Concomitant]
     Active Substance: NYSTATIN
  18. BETHKIS [Concomitant]
     Active Substance: TOBRAMYCIN
  19. CIPROFLOXACIN. [Concomitant]
     Active Substance: CIPROFLOXACIN
  20. LORATADINE. [Concomitant]
     Active Substance: LORATADINE

REACTIONS (2)
  - Cystic fibrosis [Unknown]
  - Cystic fibrosis respiratory infection suppression [Unknown]

NARRATIVE: CASE EVENT DATE: 20190824
